FAERS Safety Report 24128062 (Version 1)
Quarter: 2024Q3

REPORT INFORMATION
  Report Type: Report from Study
  Country: US (occurrence: US)
  Receive Date: 20240723
  Receipt Date: 20240723
  Transmission Date: 20241017
  Serious: No
  Sender: VANDA PHARMACEUTICALS
  Company Number: US-VANDA PHARMACEUTICALS, INC-2024TASUS007227

PATIENT
  Sex: Male

DRUGS (1)
  1. HETLIOZ LQ [Suspect]
     Active Substance: TASIMELTEON
     Indication: Smith-Magenis syndrome
     Dosage: 20 MILLIGRAM, QHS, TAKE 20 MG (5 ML) BY MOUTH AT THE SAME TIME EVERY NIGHT, WITHOUT FOOD
     Route: 048
     Dates: start: 20211111

REACTIONS (1)
  - Drug effect less than expected [Unknown]
